FAERS Safety Report 21999735 (Version 1)
Quarter: 2023Q1

REPORT INFORMATION
  Report Type: Spontaneous
  Country: US (occurrence: None)
  Receive Date: 20230215
  Receipt Date: 20230215
  Transmission Date: 20230418
  Serious: Yes (Life-Threatening, Hospitalization, Disabling)
  Sender: FDA-Public Use
  Company Number: None

PATIENT
  Age: 18 Year
  Sex: Female
  Weight: 228 kg

DRUGS (3)
  1. MILI [Suspect]
     Active Substance: ETHINYL ESTRADIOL\NORGESTIMATE
     Indication: Menstruation irregular
     Dosage: FREQUENCY : DAILY;?
     Route: 048
     Dates: start: 20220728, end: 20230208
  2. SYNTHROID [Concomitant]
     Active Substance: LEVOTHYROXINE SODIUM
  3. LEVOTHYROXINE [Concomitant]
     Active Substance: LEVOTHYROXINE

REACTIONS (8)
  - Menstruation irregular [None]
  - Migraine [None]
  - Vision blurred [None]
  - Diplegia [None]
  - Diplegia [None]
  - Cerebral thrombosis [None]
  - Heart rate [None]
  - Hypertension [None]

NARRATIVE: CASE EVENT DATE: 20230208
